FAERS Safety Report 5228436-X (Version None)
Quarter: 2007Q1

REPORT INFORMATION
  Report Type: 
  Country: None (occurrence: None)
  Receive Date: 20070205
  Receipt Date: 20070130
  Transmission Date: 20070707
  Serious: Yes (Other)
  Sender: FDA-Public Use
  Company Number: US-BRISTOL-MYERS SQUIBB COMPANY-13662556

PATIENT
  Age: 48 Year
  Sex: Female

DRUGS (4)
  1. DEFINITY [Suspect]
     Indication: STRESS ECHOCARDIOGRAM
     Dosage: 1.5 CC DEFINITY AND 8.5 CC NS--TOTAL OF 6CC SOLUTION AND 2 CC NS ADMINISTERED
     Route: 042
     Dates: start: 20060811, end: 20060811
  2. FLIXONASE [Concomitant]
  3. ASPIRIN [Concomitant]
  4. ALEVE [Concomitant]

REACTIONS (9)
  - AGITATION [None]
  - DIZZINESS [None]
  - DYSPNOEA [None]
  - FEELING ABNORMAL [None]
  - FLUSHING [None]
  - OEDEMA MOUTH [None]
  - PRURITUS [None]
  - TACHYCARDIA [None]
  - URTICARIA [None]
